FAERS Safety Report 20302860 (Version 5)
Quarter: 2022Q1

REPORT INFORMATION
  Report Type: Report from Study
  Country: US (occurrence: US)
  Receive Date: 20220106
  Receipt Date: 20220308
  Transmission Date: 20220424
  Serious: Yes (Other)
  Sender: FDA-Public Use
  Company Number: US-NOVARTISTESTPH-NVSC2022US001308

PATIENT
  Sex: Female

DRUGS (1)
  1. PIQRAY [Suspect]
     Active Substance: ALPELISIB
     Indication: Product used for unknown indication
     Dosage: UNK
     Route: 065

REACTIONS (19)
  - Hypertension [Unknown]
  - Constipation [Unknown]
  - Urinary incontinence [Unknown]
  - Thirst [Unknown]
  - Taste disorder [Unknown]
  - Illness [Unknown]
  - Flushing [Unknown]
  - Diarrhoea [Unknown]
  - Decreased appetite [Unknown]
  - Fatigue [Unknown]
  - Weight decreased [Unknown]
  - Alopecia [Unknown]
  - Stomatitis [Unknown]
  - Dry mouth [Unknown]
  - Dizziness [Unknown]
  - Blood glucose increased [Recovering/Resolving]
  - Nausea [Unknown]
  - Headache [Unknown]
  - Product blister packaging issue [Unknown]
